FAERS Safety Report 10133552 (Version 3)
Quarter: 2014Q3

REPORT INFORMATION
  Report Type: Spontaneous
  Country: US (occurrence: US)
  Receive Date: 20140428
  Receipt Date: 20140805
  Transmission Date: 20150326
  Serious: Yes (Other)
  Sender: FDA-Public Use
  Company Number: US-GLAXOSMITHKLINE-A1070123A

PATIENT
  Sex: Female

DRUGS (4)
  1. BABY ASPIRIN [Concomitant]
     Active Substance: ASPIRIN
  2. ADVAIR HFA [Suspect]
     Active Substance: FLUTICASONE PROPIONATE\SALMETEROL XINAFOATE
     Indication: CHRONIC OBSTRUCTIVE PULMONARY DISEASE
     Dosage: 1PUFF TWICE PER DAY
     Route: 055
     Dates: start: 2010, end: 201402
  3. STATINS [Concomitant]
     Active Substance: UNSPECIFIED INGREDIENT
  4. VITAMINS [Concomitant]
     Active Substance: VITAMINS

REACTIONS (12)
  - Pulmonary mass [Not Recovered/Not Resolved]
  - Cataract [Not Recovered/Not Resolved]
  - Increased upper airway secretion [Recovered/Resolved]
  - Drug ineffective [Recovered/Resolved]
  - Hyperventilation [Recovered/Resolved]
  - Interstitial lung disease [Not Recovered/Not Resolved]
  - Condition aggravated [Recovered/Resolved]
  - Restrictive pulmonary disease [Unknown]
  - Off label use [Unknown]
  - Dysphonia [Recovered/Resolved]
  - Aphasia [Recovered/Resolved]
  - Dyspnoea [Recovered/Resolved]

NARRATIVE: CASE EVENT DATE: 2013
